FAERS Safety Report 9834931 (Version 1)
Quarter: 2014Q1

REPORT INFORMATION
  Report Type: Spontaneous
  Country: RU (occurrence: RU)
  Receive Date: 20140122
  Receipt Date: 20140122
  Transmission Date: 20141002
  Serious: Yes (Hospitalization)
  Sender: FDA-Public Use
  Company Number: RU-VIIV HEALTHCARE LIMITED-B0962173A

PATIENT
  Age: 43 Year
  Sex: Female
  Weight: 79 kg

DRUGS (3)
  1. KIVEXA [Suspect]
     Indication: HIV INFECTION
     Dosage: 1TAB PER DAY
     Route: 065
     Dates: start: 20131105, end: 20131116
  2. STOCRIN [Suspect]
     Indication: HIV INFECTION
     Route: 065
     Dates: start: 2011
  3. COMBIVIR [Concomitant]
     Route: 065

REACTIONS (6)
  - Hypersensitivity [Recovered/Resolved]
  - Nausea [Recovered/Resolved]
  - Vomiting [Recovered/Resolved]
  - Abdominal pain [Recovered/Resolved]
  - General physical health deterioration [Recovered/Resolved]
  - Rash [Recovered/Resolved]
